FAERS Safety Report 10413804 (Version 3)
Quarter: 2014Q3

REPORT INFORMATION
  Report Type: Spontaneous
  Country: US (occurrence: US)
  Receive Date: 20140827
  Receipt Date: 20140911
  Transmission Date: 20150326
  Serious: Yes (Death, Hospitalization)
  Sender: FDA-Public Use
  Company Number: US-B.I. PHARMACEUTICALS,INC./RIDGEFIELD-2014-BI-39675BP

PATIENT
  Age: 79 Year
  Sex: Male
  Weight: 80.73 kg

DRUGS (3)
  1. TRIAMTERENE - HYDROCHLOROTHIAZIDE [Concomitant]
     Indication: PRODUCT USED FOR UNKNOWN INDICATION
     Route: 048
  2. PRADAXA [Suspect]
     Active Substance: DABIGATRAN ETEXILATE MESYLATE
     Indication: ATRIAL FIBRILLATION
     Dosage: 300 MG
     Route: 048
     Dates: start: 20130116, end: 20140806
  3. MORPHINE [Concomitant]
     Active Substance: MORPHINE
     Indication: PRODUCT USED FOR UNKNOWN INDICATION
     Route: 065

REACTIONS (7)
  - Arterial haemorrhage [Unknown]
  - Pharyngeal haemorrhage [Unknown]
  - Carotid aneurysm rupture [Unknown]
  - Head and neck cancer [Fatal]
  - Carotid artery aneurysm [Unknown]
  - Haemoptysis [Unknown]
  - Tongue neoplasm malignant stage unspecified [Fatal]

NARRATIVE: CASE EVENT DATE: 20140806
